FAERS Safety Report 9650907 (Version 3)
Quarter: 2015Q2

REPORT INFORMATION
  Report Type: Spontaneous
  Country: US (occurrence: US)
  Receive Date: 20131029
  Receipt Date: 20150506
  Transmission Date: 20150821
  Serious: No
  Sender: FDA-Public Use
  Company Number: US-PFIZER INC-2013304597

PATIENT
  Age: 40 Year
  Sex: Female

DRUGS (1)
  1. MORPHINE SULFATE. [Suspect]
     Active Substance: MORPHINE SULFATE
     Dosage: UNK
     Route: 030
     Dates: start: 1996

REACTIONS (3)
  - Skin burning sensation [Unknown]
  - Drug hypersensitivity [Unknown]
  - Vascular pain [Unknown]

NARRATIVE: CASE EVENT DATE: 1996
